FAERS Safety Report 26180667 (Version 1)
Quarter: 2025Q4

REPORT INFORMATION
  Report Type: Spontaneous
  Country: BR (occurrence: BR)
  Receive Date: 20251219
  Receipt Date: 20251219
  Transmission Date: 20260117
  Serious: Yes (Other)
  Sender: EXELIXIS
  Company Number: BR-IPSEN Group, Research and Development-2025-30879

PATIENT
  Age: 69 Year
  Sex: Female

DRUGS (1)
  1. CABOMETYX [Suspect]
     Active Substance: CABOZANTINIB S-MALATE
     Indication: Product used for unknown indication
     Dosage: UNK

REACTIONS (1)
  - Spinal fracture [Unknown]

NARRATIVE: CASE EVENT DATE: 20230501
